FAERS Safety Report 17109707 (Version 1)
Quarter: 2019Q4

REPORT INFORMATION
  Report Type: Spontaneous
  Country: US (occurrence: US)
  Receive Date: 20191204
  Receipt Date: 20191204
  Transmission Date: 20200122
  Serious: No
  Sender: FDA-Public Use
  Company Number: US-DRREDDYS-USA/USA/19/0116469

PATIENT
  Sex: Female
  Weight: 47.7 kg

DRUGS (2)
  1. AMLODIPINE BESILATE [Concomitant]
     Active Substance: AMLODIPINE BESYLATE
     Indication: PRODUCT USED FOR UNKNOWN INDICATION
  2. OMEPRAZOLE DELAYED RELEASE CAPSULES 20 MG [Suspect]
     Active Substance: OMEPRAZOLE
     Indication: DYSPEPSIA
     Dosage: EVERY MORNING 30 MINUTES BEFORE FOOD
     Route: 048
     Dates: start: 20191117

REACTIONS (2)
  - Pain [Unknown]
  - Headache [Unknown]
